FAERS Safety Report 4492032-2 (Version None)
Quarter: 2004Q4

REPORT INFORMATION
  Report Type: 
  Country: None (occurrence: None)
  Receive Date: 20041029
  Receipt Date: 20041018
  Transmission Date: 20050328
  Serious: Yes (Hospitalization)
  Sender: FDA-Public Use
  Company Number: HQWYE475627JUL04

PATIENT
  Age: 56 Year
  Sex: Male

DRUGS (9)
  1. RAPAMUNE [Suspect]
     Indication: PROPHYLAXIS AGAINST TRANSPLANT REJECTION
     Dosage: 2 MG 1 X PER 1 DAY
     Route: 048
     Dates: start: 20040707
  2. CYCLOSPORINE [Concomitant]
  3. PRENISONE (PREDNISONE) [Concomitant]
  4. AMLODIPINE (AMLODIPINE) [Concomitant]
  5. FUROSEMIDE [Concomitant]
  6. NYSTATINE (NYSTATIN) [Concomitant]
  7. BACTRIM [Concomitant]
  8. RANITIDINE [Concomitant]
  9. AAS (ACETYLSALICYLIC ACID) [Concomitant]

REACTIONS (2)
  - KIDNEY TRANSPLANT REJECTION [None]
  - NEPHROPATHY TOXIC [None]
